FAERS Safety Report 10274952 (Version 7)
Quarter: 2015Q2

REPORT INFORMATION
  Report Type: Report from Study
  Country: US (occurrence: US)
  Receive Date: 20140703
  Receipt Date: 20150408
  Transmission Date: 20150821
  Serious: Yes (Other)
  Sender: FDA-Public Use
  Company Number: US-GILEAD-2014-0107370

PATIENT
  Age: 77 Year
  Sex: Female

DRUGS (4)
  1. ADCIRCA [Suspect]
     Active Substance: TADALAFIL
     Indication: PRODUCT USED FOR UNKNOWN INDICATION
     Route: 065
  2. REMODULIN [Concomitant]
     Active Substance: TREPROSTINIL
  3. AMBRISENTAN [Suspect]
     Active Substance: AMBRISENTAN
     Indication: PRODUCT USED FOR UNKNOWN INDICATION
     Dosage: 10 MG, QD
     Route: 065
     Dates: start: 20070817
  4. WARFARIN [Concomitant]
     Active Substance: WARFARIN

REACTIONS (16)
  - Swollen tongue [Unknown]
  - Dry mouth [Unknown]
  - Deafness [Unknown]
  - Tooth disorder [Unknown]
  - Haemoglobin decreased [Unknown]
  - Hearing impaired [Unknown]
  - Oral pain [Unknown]
  - Lethargy [Unknown]
  - Dysphagia [Unknown]
  - Visual impairment [Unknown]
  - Pharyngeal oedema [Unknown]
  - Mood altered [Unknown]
  - Feeling of body temperature change [Unknown]
  - Diarrhoea [Unknown]
  - Fatigue [Unknown]
  - Transfusion [Unknown]

NARRATIVE: CASE EVENT DATE: 201404
